FAERS Safety Report 25991057 (Version 1)
Quarter: 2025Q4

REPORT INFORMATION
  Report Type: Spontaneous
  Country: US (occurrence: US)
  Receive Date: 20251103
  Receipt Date: 20251103
  Transmission Date: 20260117
  Serious: No
  Sender: JOHNSON AND JOHNSON
  Company Number: US-JNJFOC-20251015789

PATIENT
  Sex: Male

DRUGS (1)
  1. TALVEY [Suspect]
     Active Substance: TALQUETAMAB-TGVS
     Indication: Plasma cell myeloma
     Route: 058

REACTIONS (3)
  - Weight decreased [Unknown]
  - Asthenia [Unknown]
  - Eating disorder [Unknown]
